FAERS Safety Report 24766878 (Version 3)
Quarter: 2025Q1

REPORT INFORMATION
  Report Type: Spontaneous
  Country: US (occurrence: US)
  Receive Date: 20241223
  Receipt Date: 20250222
  Transmission Date: 20250408
  Serious: No
  Sender: SANOFI AVENTIS
  Company Number: US-SA-2024SA376896

PATIENT
  Age: 54 Year
  Sex: Female

DRUGS (2)
  1. KEVZARA [Suspect]
     Active Substance: SARILUMAB
     Indication: Psoriasis
     Dosage: 200 MG, QOW
     Route: 058
     Dates: start: 20241122
  2. STELARA [Concomitant]
     Active Substance: USTEKINUMAB

REACTIONS (6)
  - Loss of personal independence in daily activities [Unknown]
  - Pain [Unknown]
  - Rash [Recovered/Resolved]
  - Discomfort [Unknown]
  - Skin irritation [Unknown]
  - Product use in unapproved indication [Unknown]

NARRATIVE: CASE EVENT DATE: 20241101
